FAERS Safety Report 22825489 (Version 4)
Quarter: 2024Q3

REPORT INFORMATION
  Report Type: Report from Study
  Country: US (occurrence: US)
  Receive Date: 20230816
  Receipt Date: 20240717
  Transmission Date: 20241017
  Serious: Yes (Hospitalization)
  Sender: ROCHE
  Company Number: US-ROCHE-3404441

PATIENT
  Age: 41 Year
  Sex: Female
  Weight: 73.5 kg

DRUGS (11)
  1. OCREVUS [Suspect]
     Active Substance: OCRELIZUMAB
     Indication: Relapsing-remitting multiple sclerosis
     Dosage: 600MG EVERY 6 MONTH
     Route: 042
     Dates: start: 20171101
  2. OCREVUS [Suspect]
     Active Substance: OCRELIZUMAB
     Dosage: DATE OF SERVICE: 28/DEC/2022, 600, EVERY 6 MONTH
     Route: 042
  3. AMPYRA [Concomitant]
     Active Substance: DALFAMPRIDINE
  4. AMANTADINE [Concomitant]
     Active Substance: AMANTADINE
  5. GABAPENTIN [Concomitant]
     Active Substance: GABAPENTIN
  6. AMBIEN [Concomitant]
     Active Substance: ZOLPIDEM TARTRATE
  7. PHENERGAN [Concomitant]
     Active Substance: PROMETHAZINE HYDROCHLORIDE
  8. MODAFINIL [Concomitant]
     Active Substance: MODAFINIL
  9. BACLOFEN [Concomitant]
     Active Substance: BACLOFEN
  10. ESTRADIOL [Concomitant]
     Active Substance: ESTRADIOL
  11. LORAZEPAM [Concomitant]
     Active Substance: LORAZEPAM

REACTIONS (2)
  - Pneumonia [Recovered/Resolved with Sequelae]
  - Off label use [Unknown]

NARRATIVE: CASE EVENT DATE: 20240618
